FAERS Safety Report 9701416 (Version 2)
Quarter: 2013Q4

REPORT INFORMATION
  Report Type: Spontaneous
  Country: US (occurrence: US)
  Receive Date: 20131121
  Receipt Date: 20131121
  Transmission Date: 20140711
  Serious: No
  Sender: FDA-Public Use
  Company Number: US-GILEAD-2008-0016655

PATIENT
  Age: 71 Year
  Sex: Female
  Weight: 50.8 kg

DRUGS (9)
  1. LETAIRIS [Suspect]
     Indication: PULMONARY ARTERIAL HYPERTENSION
     Route: 048
     Dates: start: 20080523, end: 20080527
  2. DIGOXIN [Concomitant]
  3. NEXIUM [Concomitant]
     Route: 048
  4. REVATIO [Concomitant]
     Route: 048
  5. DILTIAZEM [Concomitant]
     Route: 048
  6. FUROSEMIDE [Concomitant]
     Route: 048
  7. POTASSIUM [Concomitant]
     Route: 048
  8. WARFARIN [Concomitant]
  9. MULTIVITAMINS [Concomitant]
     Route: 048

REACTIONS (3)
  - Oedema peripheral [Recovered/Resolved]
  - Sinus congestion [Recovered/Resolved]
  - Weight increased [Recovered/Resolved]
